FAERS Safety Report 4562365-X (Version None)
Quarter: 2005Q1

REPORT INFORMATION
  Report Type: 
  Country: None (occurrence: None)
  Receive Date: 20050127
  Receipt Date: 20050118
  Transmission Date: 20050727
  Serious: Yes (Hospitalization, Disabling)
  Sender: FDA-Public Use
  Company Number: 200510485GDDC

PATIENT
  Age: 53 Year
  Sex: Female
  Weight: 72.12 kg

DRUGS (8)
  1. GAVISCON [Suspect]
     Indication: GASTROOESOPHAGEAL REFLUX DISEASE
     Dosage: DOSE: UNK
     Route: 048
     Dates: start: 19940101
  2. HUMULIN N [Concomitant]
     Dosage: DOSE: UNK
  3. PHENYTOIN [Concomitant]
     Dosage: DOSE: UNK
  4. GABAPENTIN [Concomitant]
     Dosage: DOSE: UNK
  5. VALSARTAN [Concomitant]
     Dosage: DOSE: UNK
  6. EZETIMIBE [Concomitant]
     Dosage: DOSE: UNK
  7. METOCLOPRAMIDE [Concomitant]
     Dosage: DOSE: UNK
  8. LANTUS [Concomitant]
     Dosage: DOSE: UNK

REACTIONS (10)
  - ABASIA [None]
  - BACK PAIN [None]
  - BLOOD GLUCOSE FLUCTUATION [None]
  - BLOOD GLUCOSE INCREASED [None]
  - FALL [None]
  - INTERVERTEBRAL DISC PROTRUSION [None]
  - SPINAL FRACTURE [None]
  - THROMBOSIS [None]
  - WALKING AID USER [None]
  - WHEELCHAIR USER [None]
